FAERS Safety Report 8798338 (Version 1)
Quarter: 2012Q4

REPORT INFORMATION
  Report Type: Spontaneous
  Country: US (occurrence: None)
  Receive Date: 20120913
  Receipt Date: 20120913
  Transmission Date: 20130627
  Serious: Yes (Hospitalization)
  Sender: FDA-Public Use
  Company Number: PRED20120052

PATIENT

DRUGS (5)
  1. PREDNISONE [Suspect]
     Indication: PRODUCT USED FOR UNKNOWN INDICATION
  2. WARFARIN [Suspect]
     Indication: PRODUCT USED FOR UNKNOWN INDICATION
  3. TERIPARATIDE (TERIPARATIDE) (UNKNOWN) (TERIPARATIDE) [Concomitant]
  4. CALCIUM (CALCIUM) (UNKNOWN) (CALCIUM) [Concomitant]
  5. VITAMIN D (ERGOCALCIFEROL) (UNKNOWN) (ERGOCALCIFEROL) [Concomitant]

REACTIONS (1)
  - Calciphylaxis [None]
